FAERS Safety Report 5162177-2 (Version None)
Quarter: 2006Q4

REPORT INFORMATION
  Report Type: 
  Country: None (occurrence: None)
  Receive Date: 20061121
  Receipt Date: 20061106
  Transmission Date: 20070319
  Serious: Yes (Hospitalization)
  Sender: FDA-Public Use
  Company Number: 2006002119

PATIENT
  Age: 68 Year
  Sex: Male

DRUGS (3)
  1. ERLOTINIB (TABLET) (ERLOTINIB HCL) [Suspect]
     Indication: PANCREATIC CARCINOMA METASTATIC
     Dosage: 100 MG (QD), ORAL
     Route: 048
     Dates: start: 20060816, end: 20060828
  2. BEVACIZUMAB (INJECTION FOR INFUSION) [Suspect]
     Indication: PANCREATIC CARCINOMA METASTATIC
     Dosage: (Q2W), INTRAVENOUS
     Route: 042
     Dates: start: 20060816
  3. GEMCITABINE (GEMCITABINE) (INJECTION) [Suspect]
     Indication: PANCREATIC CARCINOMA METASTATIC
     Dosage: 1860 MG/M^2 (QW), INTRAVENOUS
     Route: 042
     Dates: start: 20060816, end: 20060828

REACTIONS (2)
  - C-REACTIVE PROTEIN INCREASED [None]
  - WHITE BLOOD CELL COUNT DECREASED [None]
